FAERS Safety Report 10022548 (Version 1)
Quarter: 2014Q1

REPORT INFORMATION
  Report Type: Spontaneous
  Country: CN (occurrence: CN)
  Receive Date: 20140319
  Receipt Date: 20140319
  Transmission Date: 20141002
  Serious: Yes (Other)
  Sender: FDA-Public Use
  Company Number: PHHY2014CN030053

PATIENT
  Age: 61 Year
  Sex: Male

DRUGS (1)
  1. AMIODARONE [Suspect]
     Indication: ARRHYTHMIA
     Dosage: 400 MG, UNK

REACTIONS (5)
  - Cataract [Unknown]
  - Keratopathy [Recovered/Resolved]
  - Deposit eye [Recovered/Resolved]
  - Corneal opacity [Recovered/Resolved]
  - Visual acuity reduced [Recovered/Resolved]
